FAERS Safety Report 8324644-X (Version None)
Quarter: 2012Q2

REPORT INFORMATION
  Report Type: 
  Country: None (occurrence: None)
  Receive Date: 20120501
  Receipt Date: 20120322
  Transmission Date: 20120825
  Serious: Yes (Hospitalization)
  Sender: FDA-Public Use
  Company Number: US-CELGENEUS-163-20785-12032585

PATIENT
  Sex: Female

DRUGS (7)
  1. THALOMID [Suspect]
     Indication: MULTIPLE MYELOMA
     Dosage: 50 MILLIGRAM
     Route: 048
     Dates: start: 20120211, end: 20120213
  2. FELODIPINE [Concomitant]
     Route: 065
  3. THALOMID [Suspect]
     Dosage: 50 MILLIGRAM
     Route: 048
     Dates: start: 20120225, end: 20120227
  4. LEVOTHYROXINE SODIUM [Concomitant]
     Route: 065
  5. ALBUTEROL [Concomitant]
     Route: 065
  6. CHLORHEXIDINE GLUCONATE [Concomitant]
     Route: 065
  7. SIMVASTATIN [Concomitant]
     Route: 065

REACTIONS (1)
  - RESPIRATORY DISTRESS [None]
